FAERS Safety Report 4837683-8 (Version None)
Quarter: 2005Q4

REPORT INFORMATION
  Report Type: 
  Country: None (occurrence: None)
  Receive Date: 20051128
  Receipt Date: 20050914
  Transmission Date: 20060501
  Serious: Yes (Hospitalization, Disabling, Other)
  Sender: FDA-Public Use
  Company Number: US-MERCK-0509USA02206

PATIENT
  Age: 62 Year
  Sex: Female
  Weight: 77 kg

DRUGS (8)
  1. VIOXX [Suspect]
     Indication: BACK PAIN
     Route: 048
     Dates: start: 20020925, end: 20040313
  2. VIOXX [Suspect]
     Route: 048
     Dates: start: 20040314, end: 20040522
  3. VIOXX [Suspect]
     Indication: ARTHRITIS
     Route: 048
     Dates: start: 20020925, end: 20040313
  4. VIOXX [Suspect]
     Route: 048
     Dates: start: 20040314, end: 20040522
  5. FLUOXETINE [Concomitant]
     Indication: DEPRESSION
     Route: 065
     Dates: start: 19990216, end: 20050518
  6. FLUOXETINE [Concomitant]
     Indication: OVERWEIGHT
     Route: 065
     Dates: start: 19990216, end: 20050518
  7. INDOCIN [Concomitant]
     Indication: ARTHRITIS
     Route: 065
     Dates: start: 20000516, end: 20030402
  8. INDOCIN [Concomitant]
     Indication: EXOSTOSIS
     Route: 065
     Dates: start: 20000516, end: 20030402

REACTIONS (13)
  - ACUTE MYOCARDIAL INFARCTION [None]
  - ARTERIOSCLEROSIS [None]
  - BLOOD CHOLESTEROL INCREASED [None]
  - CORONARY ARTERY OCCLUSION [None]
  - EMOTIONAL DISTRESS [None]
  - HYPERTENSION [None]
  - HYSTERECTOMY [None]
  - LOW DENSITY LIPOPROTEIN INCREASED [None]
  - PAIN [None]
  - SPINAL DECOMPRESSION [None]
  - SPINAL DISORDER [None]
  - TOE DEFORMITY [None]
  - UTERINE DISORDER [None]
